FAERS Safety Report 9053475 (Version 3)
Quarter: 2013Q4

REPORT INFORMATION
  Report Type: Spontaneous
  Country: GB (occurrence: GB)
  Receive Date: 20130208
  Receipt Date: 20131118
  Transmission Date: 20140711
  Serious: Yes (Disabling, Other)
  Sender: FDA-Public Use
  Company Number: PHFR2010GB04778

PATIENT
  Sex: Male

DRUGS (2)
  1. CLOZARIL [Suspect]
     Indication: SCHIZOPHRENIA, PARANOID TYPE
     Dosage: UNK
     Route: 048
     Dates: start: 20020523
  2. CLOZARIL [Suspect]
     Dosage: 350MG DAILY
     Route: 048

REACTIONS (4)
  - White blood cell count increased [Not Recovered/Not Resolved]
  - Neutrophil count increased [Recovering/Resolving]
  - Eosinophil count decreased [Unknown]
  - Differential white blood cell count abnormal [Recovering/Resolving]
